FAERS Safety Report 25343189 (Version 1)
Quarter: 2025Q2

REPORT INFORMATION
  Report Type: Spontaneous
  Country: CA (occurrence: CA)
  Receive Date: 20250521
  Receipt Date: 20250521
  Transmission Date: 20250716
  Serious: Yes (Hospitalization, Other)
  Sender: SANDOZ
  Company Number: CA-SANDOZ-SDZ2025CA034556

PATIENT
  Age: 70 Year
  Sex: Female

DRUGS (2)
  1. TACROLIMUS [Suspect]
     Active Substance: TACROLIMUS
     Indication: Renal transplant
     Dosage: 0.5 MG, QD
     Route: 048
  2. PREDNISONE [Concomitant]
     Active Substance: PREDNISONE
     Indication: Renal transplant
     Dosage: 5 MG, QD
     Route: 048

REACTIONS (10)
  - Peritoneal dialysis complication [Recovered/Resolved]
  - Bacterial infection [Recovered/Resolved]
  - Catheter site infection [Recovered/Resolved]
  - Disseminated herpes simplex [Recovered/Resolved]
  - Infection [Recovered/Resolved]
  - Listeriosis [Recovered/Resolved]
  - Peritonitis bacterial [Recovered/Resolved]
  - Pneumocystis jirovecii pneumonia [Recovered/Resolved]
  - Staphylococcal infection [Recovered/Resolved]
  - Staphylococcal infection [Recovered/Resolved]
